FAERS Safety Report 23972769 (Version 1)
Quarter: 2024Q2

REPORT INFORMATION
  Report Type: Spontaneous
  Country: DE (occurrence: DE)
  Receive Date: 20240613
  Receipt Date: 20240613
  Transmission Date: 20240715
  Serious: Yes (Other)
  Sender: FDA-Public Use
  Company Number: DE-GLAXOSMITHKLINE-DE2024EME070533

PATIENT

DRUGS (1)
  1. NUCALA [Suspect]
     Active Substance: MEPOLIZUMAB
     Indication: Product used for unknown indication
     Dosage: 100 MG

REACTIONS (9)
  - Surgery [Unknown]
  - Paranasal cyst [Unknown]
  - Eye swelling [Recovering/Resolving]
  - Nasal congestion [Unknown]
  - Fatigue [Unknown]
  - Initial insomnia [Unknown]
  - Blood immunoglobulin E increased [Unknown]
  - Eosinophil count increased [Unknown]
  - Condition aggravated [Unknown]
